FAERS Safety Report 5565527-8 (Version None)
Quarter: 2007Q4

REPORT INFORMATION
  Report Type: 
  Country: None (occurrence: None)
  Receive Date: 20071218
  Receipt Date: 20071206
  Transmission Date: 20080405
  Serious: Yes (Hospitalization)
  Sender: FDA-Public Use
  Company Number: FR-PFIZER INC-2007103474

PATIENT
  Age: 62 Year
  Sex: Female

DRUGS (13)
  1. DALACINE [Suspect]
     Route: 048
  2. BACTRIM [Suspect]
     Indication: STAPHYLOCOCCAL INFECTION
     Route: 048
  3. LAMISIL [Concomitant]
  4. GLUCOPHAGE [Concomitant]
  5. IMOVANE [Concomitant]
  6. FLUOXETINE HYDROCHLORIDE [Concomitant]
  7. INEXIUM [Concomitant]
  8. LEPTICUR [Concomitant]
  9. LEVOTHYROX [Concomitant]
  10. TARDYFERON [Concomitant]
  11. LEVOCETIRIZINE DIHYDROCHLORIDE [Concomitant]
  12. ZYPREXA [Concomitant]
  13. LOVENOX [Concomitant]

REACTIONS (11)
  - DRUG RASH WITH EOSINOPHILIA AND SYSTEMIC SYMPTOMS [None]
  - FACE OEDEMA [None]
  - HEPATITIS [None]
  - HYPERSENSITIVITY [None]
  - INFLAMMATION [None]
  - PRURIGO [None]
  - PYREXIA [None]
  - RASH [None]
  - RASH ERYTHEMATOUS [None]
  - RASH MORBILLIFORM [None]
  - SKIN EXFOLIATION [None]
